FAERS Safety Report 22399814 (Version 2)
Quarter: 2023Q2

REPORT INFORMATION
  Report Type: Spontaneous
  Country: CA (occurrence: CA)
  Receive Date: 20230602
  Receipt Date: 20230622
  Transmission Date: 20230722
  Serious: Yes (Other)
  Sender: FDA-Public Use
  Company Number: CA-PFIZER INC-202200794184

PATIENT
  Age: 68 Year
  Sex: Female
  Weight: 71.973 kg

DRUGS (48)
  1. RUXIENCE [Suspect]
     Active Substance: RITUXIMAB-PVVR
     Indication: Mixed connective tissue disease
     Dosage: DAY 1 AND DAY 15, THEN 500 MG EVERY 6 MONTHS INFUSION
     Route: 042
     Dates: start: 20221003
  2. RUXIENCE [Suspect]
     Active Substance: RITUXIMAB-PVVR
     Indication: Interstitial lung disease
     Dosage: DAY 1 AND DAY 15, THEN 500 MG EVERY 6 MONTHS INFUSION
     Route: 042
     Dates: start: 20221003, end: 20221017
  3. RUXIENCE [Suspect]
     Active Substance: RITUXIMAB-PVVR
     Dosage: DAY 1 AND DAY 15, THEN 500 MG EVERY 6 MONTHS INFUSION
     Route: 042
     Dates: start: 20221017
  4. RUXIENCE [Suspect]
     Active Substance: RITUXIMAB-PVVR
     Dosage: 500 MG, EVERY 6 MONTHS DAY 1 AND DAY 15 THEN Q 6 MONTHS (NOT YET STARTED)
     Route: 042
  5. DAPSONE [Concomitant]
     Active Substance: DAPSONE
     Dosage: 100 MG, DAILY
     Dates: start: 202210, end: 202304
  6. PREDNISONE [Concomitant]
     Active Substance: PREDNISONE
     Dosage: 30 MG, DAILY
     Dates: start: 20180316
  7. PREDNISONE [Concomitant]
     Active Substance: PREDNISONE
     Dosage: 15 MG
     Dates: start: 201806
  8. PREDNISONE [Concomitant]
     Active Substance: PREDNISONE
     Dosage: 10 MG FOR 6 MONTHS
  9. PREDNISONE [Concomitant]
     Active Substance: PREDNISONE
     Dosage: 9MG
     Dates: start: 2019
  10. PREDNISONE [Concomitant]
     Active Substance: PREDNISONE
     Dosage: 8 MG
     Dates: start: 202001
  11. PREDNISONE [Concomitant]
     Active Substance: PREDNISONE
     Dosage: 7.5 MG
     Dates: end: 202304
  12. DICLOFENAC [Concomitant]
     Active Substance: DICLOFENAC
     Dosage: UNK
  13. PANTOPRAZOLE [Concomitant]
     Active Substance: PANTOPRAZOLE
     Dosage: UNK
  14. EBASTINE [Concomitant]
     Active Substance: EBASTINE
     Dosage: UNK
  15. DIAZEPAM [Concomitant]
     Active Substance: DIAZEPAM
     Dosage: UNK
  16. RITALIN [Concomitant]
     Active Substance: METHYLPHENIDATE HYDROCHLORIDE
     Dosage: UNK
  17. CYCLOBENZAPRINE [Concomitant]
     Active Substance: CYCLOBENZAPRINE
     Dosage: UNK
  18. ROSUVASTATIN [Concomitant]
     Active Substance: ROSUVASTATIN
     Dosage: UNK
  19. VALSARTAN [Concomitant]
     Active Substance: VALSARTAN
     Dosage: UNK
  20. NIFEDIPINE [Concomitant]
     Active Substance: NIFEDIPINE
     Dosage: UNK
  21. ESCITALOPRAM [Concomitant]
     Active Substance: ESCITALOPRAM OXALATE
     Dosage: UNK
  22. VAGIFEM [Concomitant]
     Active Substance: ESTRADIOL
     Dosage: UNK
  23. METFORMIN [Concomitant]
     Active Substance: METFORMIN HYDROCHLORIDE
     Dosage: UNK
  24. SEROQUEL [Concomitant]
     Active Substance: QUETIAPINE FUMARATE
     Dosage: UNK
  25. GABAPENTIN [Concomitant]
     Active Substance: GABAPENTIN
     Dosage: UNK
  26. NORTRIPTYLINE [Concomitant]
     Active Substance: NORTRIPTYLINE
     Dosage: UNK
  27. JANUVIA [Concomitant]
     Active Substance: SITAGLIPTIN PHOSPHATE
     Dosage: UNK
  28. LANTUS [Concomitant]
     Active Substance: INSULIN GLARGINE
     Dosage: UNK
  29. HUMALOG [Concomitant]
     Active Substance: INSULIN LISPRO
     Dosage: UNK
  30. TRAMADOL HYDROCHLORIDE [Concomitant]
     Active Substance: TRAMADOL HYDROCHLORIDE
     Dosage: UNK
  31. XYLOMETAZOLINE HYDROCHLORIDE [Concomitant]
     Active Substance: XYLOMETAZOLINE HYDROCHLORIDE
     Dosage: UNK
  32. GRAVOL [Concomitant]
     Active Substance: DIMENHYDRINATE
     Dosage: UNK
  33. NUCYNTA [Concomitant]
     Active Substance: TAPENTADOL HYDROCHLORIDE
     Dosage: UNK
  34. VITAMIN D NOS [Concomitant]
     Active Substance: VITAMIN D NOS
     Dosage: UNK
  35. FERROUS GLUCONATE [Concomitant]
     Active Substance: FERROUS GLUCONATE
     Dosage: UNK
  36. CALCIUM [Concomitant]
     Active Substance: CALCIUM
     Dosage: UNK
  37. FOLIC ACID [Concomitant]
     Active Substance: FOLIC ACID
     Dosage: UNK
  38. FISH OIL [Concomitant]
     Active Substance: FISH OIL
     Dosage: UNK
  39. VITAMIN B12 [Concomitant]
     Active Substance: CYANOCOBALAMIN
     Dosage: UNK
  40. SODIUM BICARBONATE\SODIUM CHLORIDE [Concomitant]
     Active Substance: SODIUM BICARBONATE\SODIUM CHLORIDE
     Dosage: UNK
  41. OMNARIS [Concomitant]
     Active Substance: CICLESONIDE
     Dosage: UNK
  42. CANNABIDIOL\HERBALS [Concomitant]
     Active Substance: CANNABIDIOL\HERBALS
     Dosage: UNK
  43. PROLIA [Concomitant]
     Active Substance: DENOSUMAB
     Dosage: UNK
  44. FIBER [Concomitant]
     Dosage: UNK
  45. DOCUSATE SODIUM [Concomitant]
     Active Substance: DOCUSATE SODIUM
     Dosage: 300 MG
  46. HYDROMORPHONE [Concomitant]
     Active Substance: HYDROMORPHONE
     Dosage: 1 MG EVERY 2-4 HRS
  47. RESTORIL [Concomitant]
     Active Substance: TEMAZEPAM
     Dosage: UNK
  48. HYDROXYCHLOROQUINE SULFATE [Concomitant]
     Active Substance: HYDROXYCHLOROQUINE SULFATE
     Dosage: 200 MG, DAILY
     Dates: start: 2019, end: 202304

REACTIONS (28)
  - Respiratory disorder [Unknown]
  - Bone pain [Not Recovered/Not Resolved]
  - Arthralgia [Not Recovered/Not Resolved]
  - Infusion site pain [Recovering/Resolving]
  - Infusion site bruising [Unknown]
  - Constipation [Not Recovered/Not Resolved]
  - Urinary hesitation [Not Recovered/Not Resolved]
  - Dry mouth [Not Recovered/Not Resolved]
  - Cough [Not Recovered/Not Resolved]
  - Wheezing [Not Recovered/Not Resolved]
  - Haemoglobin decreased [Recovering/Resolving]
  - Haematocrit decreased [Unknown]
  - Platelet count decreased [Recovering/Resolving]
  - Fatigue [Unknown]
  - Dyspnoea [Unknown]
  - Periorbital swelling [Unknown]
  - Ocular hyperaemia [Unknown]
  - White blood cell count increased [Unknown]
  - Mean cell haemoglobin increased [Unknown]
  - Anaemia [Unknown]
  - Night sweats [Unknown]
  - Increased tendency to bruise [Unknown]
  - Red blood cell count decreased [Unknown]
  - Mean cell volume decreased [Unknown]
  - Neutrophilia [Unknown]
  - Lymphopenia [Recovering/Resolving]
  - Productive cough [Unknown]
  - Off label use [Unknown]

NARRATIVE: CASE EVENT DATE: 20221001
